FAERS Safety Report 10327271 (Version 1)
Quarter: 2014Q3

REPORT INFORMATION
  Report Type: Report from Study
  Country: US (occurrence: US)
  Receive Date: 20140721
  Receipt Date: 20140721
  Transmission Date: 20150326
  Serious: Yes (Other)
  Sender: FDA-Public Use
  Company Number: US-ROCHE-1380001

PATIENT
  Sex: Female
  Weight: 87.62 kg

DRUGS (26)
  1. NASACORT AQ [Concomitant]
     Active Substance: TRIAMCINOLONE ACETONIDE
     Dosage: IN EACH NOSTRIL
     Route: 045
  2. PROVENTIL HFA [Concomitant]
     Active Substance: ALBUTEROL SULFATE
     Dosage: 2 PUFFS BY MOUTH Q 4 TO 6 HR
     Route: 048
  3. IPRATROPIUM BROMIDE. [Concomitant]
     Active Substance: IPRATROPIUM BROMIDE
  4. DIAZEPAM. [Suspect]
     Active Substance: DIAZEPAM
     Indication: PRODUCT USED FOR UNKNOWN INDICATION
     Route: 065
  5. HYDROCORTISONE ACETATE. [Concomitant]
     Active Substance: HYDROCORTISONE ACETATE
     Dosage: THIN FILM TO AFFECTED AREA
     Route: 061
  6. ZYRTEC [Concomitant]
     Active Substance: CETIRIZINE HYDROCHLORIDE
     Dosage: 1 BY MOUTH Q AM
     Route: 048
  7. TOPAMAX [Concomitant]
     Active Substance: TOPIRAMATE
     Route: 048
  8. LISINOPRIL. [Concomitant]
     Active Substance: LISINOPRIL
     Route: 048
  9. FEVERFEW [Concomitant]
     Active Substance: FEVERFEW
  10. XOPENEX [Concomitant]
     Active Substance: LEVALBUTEROL HYDROCHLORIDE
     Dosage: /3ML 1 VIAL EVERY 4-6 HR PRN
     Route: 045
  11. ACETYLSALICYLIC ACID (ASA) [Concomitant]
  12. SINGULAIR [Concomitant]
     Active Substance: MONTELUKAST SODIUM
     Dosage: PO QD
     Route: 048
  13. OMEPRAZOLE. [Concomitant]
     Active Substance: OMEPRAZOLE
     Dosage: EXTANDED RELEASE BID
     Route: 048
  14. RANITIDINE [Concomitant]
     Active Substance: RANITIDINE\RANITIDINE HYDROCHLORIDE
     Route: 048
  15. TIZANIDINE HCL [Concomitant]
     Active Substance: TIZANIDINE HYDROCHLORIDE
     Route: 048
  16. ALPRAZOLAM. [Concomitant]
     Active Substance: ALPRAZOLAM
     Route: 048
  17. ADVAIR DISKUS [Concomitant]
     Active Substance: FLUTICASONE PROPIONATE\SALMETEROL XINAFOATE
     Dosage: 500/50 INHALE 1 PUFF
     Route: 065
  18. QVAR [Concomitant]
     Active Substance: BECLOMETHASONE DIPROPIONATE
     Dosage: 2 PUFFS FOR 1 MONTH,THEN 1 PUFF BID
     Route: 048
  19. CLARITIN [Concomitant]
     Active Substance: LORATADINE
     Route: 048
  20. SIMETHICONE [Concomitant]
     Active Substance: DIMETHICONE\SILICON DIOXIDE\SIMETHICONE
  21. XOLAIR [Suspect]
     Active Substance: OMALIZUMAB
     Indication: ASTHMA
     Route: 058
  22. EPIPEN [Concomitant]
     Active Substance: EPINEPHRINE
     Dosage: 1:1,000 SOLUTION FOR INJECTION
     Route: 065
  23. RISPERDAL [Concomitant]
     Active Substance: RISPERIDONE
     Route: 048
  24. ROSUVASTATIN [Concomitant]
     Active Substance: ROSUVASTATIN
     Route: 048
  25. TRIAMCINOLONE ACETONIDE. [Concomitant]
     Active Substance: TRIAMCINOLONE ACETONIDE
     Dosage: THIN FILM TO AFFECTED AREA
     Route: 061
  26. BENADRYL [Concomitant]
     Active Substance: DIPHENHYDRAMINE HYDROCHLORIDE
     Dosage: AS REQUIRED USUALLY DAILY
     Route: 065

REACTIONS (14)
  - Lethargy [Unknown]
  - Drug hypersensitivity [Unknown]
  - Conjunctivitis allergic [Unknown]
  - Asthma [Unknown]
  - Fatigue [Unknown]
  - Transient ischaemic attack [Unknown]
  - Injection site swelling [Unknown]
  - Dermatitis atopic [Unknown]
  - Injection site erythema [Unknown]
  - Anaphylactic reaction [Unknown]
  - Anxiety [Unknown]
  - Injection site pruritus [Unknown]
  - Gastrooesophageal reflux disease [Unknown]
  - Cyanosis [Unknown]
